FAERS Safety Report 25312440 (Version 1)
Quarter: 2025Q2

REPORT INFORMATION
  Report Type: Spontaneous
  Country: US (occurrence: None)
  Receive Date: 20250513
  Receipt Date: 20250513
  Transmission Date: 20250717
  Serious: Yes (Other)
  Sender: FDA-CTU
  Company Number: None

PATIENT
  Age: 46 Year
  Sex: Female
  Weight: 52.65 kg

DRUGS (6)
  1. IMIPENEM [Suspect]
     Active Substance: IMIPENEM
     Indication: Mycobacterium abscessus infection
     Dates: start: 20250220
  2. IMIPENEM [Suspect]
     Active Substance: IMIPENEM
     Indication: Pneumonia
  3. OMADACYCLINE [Concomitant]
     Active Substance: OMADACYCLINE
     Dates: start: 20250218, end: 20250427
  4. liposomal inhaled amikacin [Concomitant]
     Dates: start: 20250318
  5. ETHAMBUTOL [Concomitant]
     Active Substance: ETHAMBUTOL HYDROCHLORIDE
     Dates: start: 20241203
  6. CLOFAZIMINE [Concomitant]
     Active Substance: CLOFAZIMINE
     Dates: start: 20241220

REACTIONS (1)
  - Tooth discolouration [None]

NARRATIVE: CASE EVENT DATE: 20250413
